FAERS Safety Report 9467724 (Version 2)
Quarter: 2013Q3

REPORT INFORMATION
  Report Type: Report from Study
  Country: CA (occurrence: CA)
  Receive Date: 20130821
  Receipt Date: 20130913
  Transmission Date: 20140515
  Serious: Yes (Other)
  Sender: FDA-Public Use
  Company Number: CA-JNJFOC-20130807834

PATIENT
  Age: 74 Year
  Sex: Female
  Weight: 63.6 kg

DRUGS (10)
  1. REMICADE [Suspect]
     Indication: RHEUMATOID ARTHRITIS
     Route: 042
     Dates: start: 20090119
  2. ACETYL SALICYLIC ACID [Suspect]
     Indication: PRODUCT USED FOR UNKNOWN INDICATION
     Route: 065
  3. SYNTHROID [Concomitant]
     Route: 065
  4. WELLBUTRIN [Concomitant]
     Route: 065
  5. METHOTREXATE [Concomitant]
     Route: 065
  6. PREDNISONE [Concomitant]
     Route: 065
  7. FOLIC ACID [Concomitant]
     Route: 065
  8. MAVIK [Concomitant]
     Route: 065
  9. ESTRADOT PATCH [Concomitant]
     Route: 065
  10. VENTOLIN [Concomitant]
     Route: 065

REACTIONS (5)
  - Haematochezia [Recovered/Resolved]
  - Haemorrhage [Recovered/Resolved]
  - Abdominal pain lower [Recovered/Resolved]
  - Joint swelling [Recovering/Resolving]
  - Erythema [Recovering/Resolving]
